FAERS Safety Report 10460161 (Version 2)
Quarter: 2014Q3

REPORT INFORMATION
  Report Type: Spontaneous
  Country: US (occurrence: US)
  Receive Date: 20140917
  Receipt Date: 20140917
  Transmission Date: 20150326
  Serious: Yes (Hospitalization, Other)
  Sender: FDA-Public Use
  Company Number: US-RECKITT BENCKISER PHARMACEUTICAL, INC-RB-61825-2013

PATIENT
  Age: 33 Year
  Sex: Female
  Weight: 61.22 kg

DRUGS (7)
  1. SUBOXONE [Suspect]
     Active Substance: BUPRENORPHINE HYDROCHLORIDE\NALOXONE HYDROCHLORIDE
     Indication: DRUG DEPENDENCE
     Dosage: 8 MG, BID
     Route: 060
     Dates: start: 20130930, end: 20131210
  2. BUPRENORPHINE GENERIC TAB [Suspect]
     Active Substance: BUPRENORPHINE
     Indication: DRUG DEPENDENCE
     Dosage: 8 MG, BID
     Route: 060
     Dates: start: 20131210, end: 20140902
  3. NICOTINE. [Concomitant]
     Active Substance: NICOTINE
     Indication: PRODUCT USED FOR UNKNOWN INDICATION
     Dosage: 10 CIGARETTES A DAY
     Route: 055
     Dates: start: 2001
  4. PROZAC [Concomitant]
     Active Substance: FLUOXETINE HYDROCHLORIDE
     Indication: DEPRESSION
     Dosage: 20 MG (1-2 TABLETS) DAILY
     Route: 048
     Dates: start: 2010, end: 20131215
  5. KLONOPIN [Concomitant]
     Active Substance: CLONAZEPAM
     Indication: PANIC DISORDER WITH AGORAPHOBIA
     Dosage: TAKING 0.5 MG (1/2 - 1 TABLET) TWICE A DAY
     Route: 048
     Dates: start: 20120222
  6. PROZAC [Concomitant]
     Active Substance: FLUOXETINE HYDROCHLORIDE
     Indication: BIPOLAR DISORDER
  7. KLONOPIN [Concomitant]
     Active Substance: CLONAZEPAM
     Dosage: TAKING 0.5 MG (1 TO 2 TABLET) TWICE A DAY
     Route: 048
     Dates: start: 20120502

REACTIONS (5)
  - Hyperemesis gravidarum [Recovered/Resolved]
  - Stillbirth [Recovered/Resolved]
  - Premature labour [Recovered/Resolved]
  - Off label use [Recovered/Resolved]
  - Maternal exposure during pregnancy [Recovered/Resolved]

NARRATIVE: CASE EVENT DATE: 2013
